FAERS Safety Report 6591264-7 (Version None)
Quarter: 2010Q1

REPORT INFORMATION
  Report Type: 
  Country: None (occurrence: None)
  Receive Date: 20100219
  Receipt Date: 20100212
  Transmission Date: 20100710
  Serious: Yes (Other)
  Sender: FDA-Public Use
  Company Number: US-JNJCH-2010003849

PATIENT
  Age: 44 Year
  Sex: Male
  Weight: 90.7 kg

DRUGS (1)
  1. NEOSPORIN [Suspect]
     Indication: ARTHROPOD BITE
     Dosage: TEXT:UNSPECIFIED ONCE
     Route: 061

REACTIONS (6)
  - APPLICATION SITE BURN [None]
  - INFECTION [None]
  - LOSS OF EMPLOYMENT [None]
  - OFF LABEL USE [None]
  - PAIN [None]
  - SCAR [None]
